FAERS Safety Report 20166733 (Version 2)
Quarter: 2022Q4

REPORT INFORMATION
  Report Type: Spontaneous
  Country: PL (occurrence: PL)
  Receive Date: 20211209
  Receipt Date: 20221027
  Transmission Date: 20230112
  Serious: Yes (Other)
  Sender: FDA-Public Use
  Company Number: PL-CELLTRION HEALTHCARE HUNGARY KFT-2021PL015615

PATIENT
  Age: 20 Year
  Sex: Female

DRUGS (4)
  1. METHYLPREDNISOLONE SODIUM SUCCINATE [Suspect]
     Active Substance: METHYLPREDNISOLONE SODIUM SUCCINATE
     Indication: Neuromyelitis optica spectrum disorder
     Dosage: 1 G, 1X/DAY (PULSES)
     Route: 042
  2. RITUXIMAB [Suspect]
     Active Substance: RITUXIMAB
     Dosage: 1 G, 1X/DAY (1 G WAS ADMINISTERED TWICE, 14 DAYS APART)
  3. IMMUNE GLOBULIN NOS [Suspect]
     Active Substance: IMMUNE GLOBULIN NOS
     Dosage: (2 G/KG BW FOR 5 DAYS)
  4. PREDNISONE [Suspect]
     Active Substance: PREDNISONE
     Dosage: MAINTENANCE DOSE

REACTIONS (4)
  - Urinary retention [Unknown]
  - Visual impairment [Unknown]
  - Paraesthesia [Unknown]
  - Therapeutic product effect incomplete [Unknown]
